FAERS Safety Report 7532680-6 (Version None)
Quarter: 2011Q2

REPORT INFORMATION
  Report Type: 
  Country: None (occurrence: None)
  Receive Date: 20110608
  Receipt Date: 20110603
  Transmission Date: 20111010
  Serious: Yes (Death, Hospitalization)
  Sender: FDA-Public Use
  Company Number: A0886508A

PATIENT
  Age: 79 Year
  Sex: Male

DRUGS (1)
  1. AVANDIA [Suspect]
     Dosage: 8MG PER DAY
     Route: 048
     Dates: end: 20070731

REACTIONS (3)
  - MYOCARDIAL INFARCTION [None]
  - CORONARY ANGIOPLASTY [None]
  - CARDIAC FAILURE CONGESTIVE [None]
